FAERS Safety Report 4588806-X (Version None)
Quarter: 2005Q1

REPORT INFORMATION
  Report Type: 
  Country: None (occurrence: None)
  Receive Date: 20050216
  Receipt Date: 20050209
  Transmission Date: 20050727
  Serious: Yes (Other)
  Sender: FDA-Public Use
  Company Number: 2005027614

PATIENT
  Age: 66 Year
  Sex: Male
  Weight: 72.5755 kg

DRUGS (3)
  1. LIPITOR [Suspect]
     Indication: BLOOD CHOLESTEROL INCREASED
     Dosage: 10 MG (10 MG, 1 IN 1 D)
     Dates: start: 20041101, end: 20050101
  2. HYDROCHLOROTHIAZIDE/OLMESARTAN (HYDROCHLOROTHIAZIDE/OLMESARTAN) [Concomitant]
  3. LANSOPRAZOLE [Concomitant]

REACTIONS (5)
  - ABASIA [None]
  - ARTHRALGIA [None]
  - FEAR [None]
  - INADEQUATE ANALGESIA [None]
  - PAIN [None]
